FAERS Safety Report 5190471-8 (Version None)
Quarter: 2006Q4

REPORT INFORMATION
  Report Type: 
  Country: None (occurrence: None)
  Receive Date: 20061222
  Receipt Date: 20040203
  Transmission Date: 20070319
  Serious: Yes (Death)
  Sender: FDA-Public Use
  Company Number: CA-GLAXOSMITHKLINE-A0496706A

PATIENT
  Age: 12 Year
  Sex: Female

DRUGS (1)
  1. PAXIL [Suspect]
     Indication: DRUG USE FOR UNKNOWN INDICATION
     Route: 048
     Dates: start: 20001201, end: 20010607

REACTIONS (10)
  - AGGRESSION [None]
  - APATHY [None]
  - COMPLETED SUICIDE [None]
  - DARK CIRCLES UNDER EYES [None]
  - INJURY ASPHYXIATION [None]
  - INSOMNIA [None]
  - NEGATIVISM [None]
  - PERSONALITY DISORDER [None]
  - RASH [None]
  - SKIN DISCOLOURATION [None]
